FAERS Safety Report 5576774-3 (Version None)
Quarter: 2007Q4

REPORT INFORMATION
  Report Type: 
  Country: None (occurrence: None)
  Receive Date: 20071130
  Receipt Date: 20070729
  Transmission Date: 20080405
  Serious: No
  Sender: FDA-Public Use
  Company Number: US200707006976

PATIENT
  Sex: Female

DRUGS (3)
  1. BYETTA [Suspect]
     Indication: TYPE 2 DIABETES MELLITUS
     Dosage: 5 UG, 2/D, SUBCUTANEOUS; 10UG, 2/D, SUBCUTANEOUS
     Route: 058
     Dates: start: 20070501, end: 20070701
  2. BYETTA [Suspect]
     Indication: TYPE 2 DIABETES MELLITUS
     Dosage: 5 UG, 2/D, SUBCUTANEOUS; 10UG, 2/D, SUBCUTANEOUS
     Route: 058
     Dates: start: 20070701
  3. METFORMIN HCL [Concomitant]

REACTIONS (3)
  - BLOOD GLUCOSE INCREASED [None]
  - DRUG EFFECT DECREASED [None]
  - INCORRECT DOSE ADMINISTERED [None]
